FAERS Safety Report 13847760 (Version 1)
Quarter: 2017Q3

REPORT INFORMATION
  Report Type: Spontaneous
  Country: US (occurrence: US)
  Receive Date: 20170809
  Receipt Date: 20170809
  Transmission Date: 20171127
  Serious: No
  Sender: FDA-Public Use
  Company Number: US-PURDUE-USA-2017-0137064

PATIENT
  Sex: Female

DRUGS (1)
  1. BUTRANS [Suspect]
     Active Substance: BUPRENORPHINE
     Indication: ANALGESIC THERAPY
     Dosage: 10 MCG/HR, WEEKLY
     Route: 062
     Dates: start: 20170224

REACTIONS (9)
  - Fear [Unknown]
  - Drug ineffective [Unknown]
  - Nausea [Unknown]
  - Chest discomfort [Unknown]
  - Heart rate increased [Unknown]
  - Drug withdrawal syndrome [Recovered/Resolved]
  - Dyspnoea [Unknown]
  - Paraesthesia oral [Unknown]
  - Headache [Unknown]

NARRATIVE: CASE EVENT DATE: 20170224
